FAERS Safety Report 6104940-7 (Version None)
Quarter: 2009Q1

REPORT INFORMATION
  Report Type: 
  Country: None (occurrence: None)
  Receive Date: 20090306
  Receipt Date: 20090227
  Transmission Date: 20090719
  Serious: Yes (Other)
  Sender: FDA-Public Use
  Company Number: BR-ASTRAZENECA-2009UW05612

PATIENT
  Age: 40 Year
  Sex: Female
  Weight: 62 kg

DRUGS (5)
  1. ZOLADEX [Suspect]
     Indication: LEIOMYOMA
     Route: 058
     Dates: start: 20070601, end: 20080601
  2. ZOLADEX [Suspect]
     Indication: ENDOMETRIOSIS
     Route: 058
     Dates: start: 20070601, end: 20080601
  3. ZOLADEX [Suspect]
     Route: 058
     Dates: start: 20081101
  4. ZOLADEX [Suspect]
     Route: 058
     Dates: start: 20081101
  5. CEZZARETTE [Concomitant]
     Dates: start: 20090201

REACTIONS (5)
  - HOT FLUSH [None]
  - HYPOTENSION [None]
  - LEIOMYOMA [None]
  - MENORRHAGIA [None]
  - OVARIAN ENLARGEMENT [None]
